FAERS Safety Report 14307643 (Version 1)
Quarter: 2017Q4

REPORT INFORMATION
  Report Type: Spontaneous
  Country: US (occurrence: US)
  Receive Date: 20171219
  Receipt Date: 20171219
  Transmission Date: 20180321
  Serious: Yes (Life-Threatening, Hospitalization)
  Sender: FDA-Public Use
  Company Number: None

PATIENT
  Age: 42 Year
  Sex: Female
  Weight: 93.1 kg

DRUGS (2)
  1. PHENDIMETRAZINE 35MG [Suspect]
     Active Substance: PHENDIMETRAZINE
     Indication: OBESITY
     Dosage: 35 MG TIDAC ORAL
     Route: 048
  2. NATURE-THROID [Suspect]
     Active Substance: THYROID, PORCINE
     Indication: HYPOTHYROIDISM
     Route: 048

REACTIONS (2)
  - Chest pain [None]
  - Cardiac arrest [None]

NARRATIVE: CASE EVENT DATE: 20171218
